FAERS Safety Report 20849630 (Version 9)
Quarter: 2022Q3

REPORT INFORMATION
  Report Type: Spontaneous
  Country: US (occurrence: US)
  Receive Date: 20220519
  Receipt Date: 20220802
  Transmission Date: 20221027
  Serious: Yes (Other)
  Sender: FDA-Public Use
  Company Number: US-PFIZER INC-202200707454

PATIENT
  Age: 88 Year
  Sex: Female

DRUGS (4)
  1. PREMARIN [Suspect]
     Active Substance: ESTROGENS, CONJUGATED
     Indication: Atrophic vulvovaginitis
     Dosage: 1 G, 1X/DAY (3 MONTH SUPPLY)
     Route: 067
  2. PREMARIN [Suspect]
     Active Substance: ESTROGENS, CONJUGATED
     Indication: Bladder disorder
     Dosage: 1 G, DAILY
     Route: 067
  3. CARVEDILOL [Concomitant]
     Active Substance: CARVEDILOL
     Indication: Hypertension
     Dosage: UNK
  4. NIFEDIPINE [Concomitant]
     Active Substance: NIFEDIPINE
     Indication: Hypertension
     Dosage: 30 MG, 2X/DAY

REACTIONS (7)
  - Deafness [Unknown]
  - Frustration tolerance decreased [Unknown]
  - Hypoacusis [Not Recovered/Not Resolved]
  - Pain [Unknown]
  - General physical health deterioration [Unknown]
  - Blood pressure increased [Unknown]
  - Off label use [Unknown]
